FAERS Safety Report 5329120-4 (Version None)
Quarter: 2007Q2

REPORT INFORMATION
  Report Type: 
  Country: None (occurrence: None)
  Receive Date: 20070518
  Receipt Date: 20070516
  Transmission Date: 20071010
  Serious: Yes (Hospitalization, Disabling, Other)
  Sender: FDA-Public Use
  Company Number: GB-ROXANE LABORATORIES, INC-2007-UK-01598UK

PATIENT
  Age: 62 Year
  Sex: Male

DRUGS (9)
  1. MORPHINE [Suspect]
     Indication: PAIN
  2. NEOTIGASON [Suspect]
     Indication: PSORIASIS
     Route: 048
     Dates: start: 20050313, end: 20060911
  3. BECLOMETHASONE DIPROPIONATE [Concomitant]
     Dosage: 2 DF
     Route: 055
  4. CAPASAL [Concomitant]
  5. COAL TAR [Concomitant]
     Dosage: 2 / 1 DAYS
     Dates: start: 20050607
  6. MIRTAZAPINE [Concomitant]
     Dosage: 1 DF
     Dates: start: 20060407
  7. OLANZAPINE [Concomitant]
     Dosage: 1 DF ONCE DAILY
     Dates: start: 20051111
  8. PARAFFIN, LIQUID [Concomitant]
  9. SALBUTAMOL [Concomitant]
     Dosage: 1 DF AS REQUIRED

REACTIONS (12)
  - BONE PAIN [None]
  - CONSTIPATION [None]
  - DEHYDRATION [None]
  - DIARRHOEA [None]
  - ENTHESOPATHY [None]
  - IMPAIRED HEALING [None]
  - INSOMNIA [None]
  - MOBILITY DECREASED [None]
  - NECK PAIN [None]
  - ORAL INTAKE REDUCED [None]
  - PAIN IN EXTREMITY [None]
  - TENDONITIS [None]
